FAERS Safety Report 8508625 (Version 2)
Quarter: 2013Q4

REPORT INFORMATION
  Report Type: Spontaneous
  Country: US (occurrence: US)
  Receive Date: 20120412
  Receipt Date: 20131125
  Transmission Date: 20140711
  Serious: No
  Sender: FDA-Public Use
  Company Number: US-ASTRAZENECA-2011SE50334

PATIENT
  Age: 39 Year
  Sex: Female
  Weight: 188.2 kg

DRUGS (8)
  1. NEXIUM [Suspect]
     Indication: ULCER HAEMORRHAGE
     Route: 048
     Dates: start: 2001, end: 2005
  2. NEXIUM [Suspect]
     Indication: ULCER HAEMORRHAGE
     Route: 048
     Dates: start: 2009, end: 201211
  3. PRILOSEC [Suspect]
     Indication: ULCER HAEMORRHAGE
     Route: 048
  4. PRILOSEC [Suspect]
     Indication: ULCER HAEMORRHAGE
     Route: 048
     Dates: start: 201301, end: 20131101
  5. PRILOSEC OTC [Suspect]
     Route: 048
  6. UNSPECIFIED GENERICS [Suspect]
     Route: 065
  7. PROTONIX [Concomitant]
  8. ZOFRAN [Concomitant]

REACTIONS (12)
  - Gastrooesophageal reflux disease [Unknown]
  - Gastric ulcer [Unknown]
  - Poor quality sleep [Not Recovered/Not Resolved]
  - Feeling abnormal [Not Recovered/Not Resolved]
  - Dehydration [Unknown]
  - Malaise [Unknown]
  - Vomiting [Not Recovered/Not Resolved]
  - Nausea [Not Recovered/Not Resolved]
  - Drug ineffective [Not Recovered/Not Resolved]
  - Drug dose omission [Unknown]
  - Off label use [Unknown]
  - Intentional drug misuse [Unknown]
